FAERS Safety Report 5016720-4 (Version None)
Quarter: 2006Q2

REPORT INFORMATION
  Report Type: 
  Country: None (occurrence: None)
  Receive Date: 20060602
  Receipt Date: 20050307
  Transmission Date: 20061013
  Serious: No
  Sender: FDA-Public Use
  Company Number: US-GLAXOSMITHKLINE-A0548615A

PATIENT
  Age: 3 Year
  Sex: Female

DRUGS (2)
  1. AUGMENTIN ES-600 [Suspect]
     Indication: SINUSITIS
     Dosage: 600MG TWICE PER DAY
     Route: 048
     Dates: start: 20050225, end: 20050304
  2. NO CONCURRENT MEDICATION [Concomitant]

REACTIONS (1)
  - URTICARIA [None]
